FAERS Safety Report 7209353-2 (Version None)
Quarter: 2010Q4

REPORT INFORMATION
  Report Type: 
  Country: None (occurrence: None)
  Receive Date: 20101222
  Receipt Date: 20101210
  Transmission Date: 20110411
  Serious: Yes (Life-Threatening, Hospitalization)
  Sender: FDA-Public Use
  Company Number: 2010005455

PATIENT
  Age: 59 Year
  Sex: Male

DRUGS (1)
  1. TARCEVA [Suspect]
     Indication: PRODUCT USED FOR UNKNOWN INDICATION
     Dosage: (150 MG,QD),ORAL
     Route: 048
     Dates: start: 20101201

REACTIONS (3)
  - GASTRIC PERFORATION [None]
  - HAEMORRHAGE [None]
  - SEPTIC SHOCK [None]
